FAERS Safety Report 6583173-4 (Version None)
Quarter: 2010Q1

REPORT INFORMATION
  Report Type: 
  Country: None (occurrence: None)
  Receive Date: 20100216
  Receipt Date: 20100201
  Transmission Date: 20100710
  Serious: Yes (Hospitalization)
  Sender: FDA-Public Use
  Company Number: US-ROCHE-684820

PATIENT
  Sex: Female
  Weight: 72.1 kg

DRUGS (4)
  1. BEVACIZUMAB [Suspect]
     Indication: COLON CANCER
     Dosage: 5 MG/KG, Q2W
     Route: 042
     Dates: start: 20070627
  2. IRINOTECAN HYDROCHLORIDE [Suspect]
     Indication: COLON CANCER
     Dosage: 120 MG/M2, Q21D
     Route: 042
     Dates: start: 20081229
  3. FLUOROURACIL [Suspect]
     Indication: COLON CANCER
     Dosage: 404.3 MG/M2, Q21D
     Route: 042
     Dates: start: 20070613
  4. LEUCOVORIN CALCIUM [Suspect]
     Indication: COLON CANCER
     Dosage: 404.3 MG/M2, Q21D
     Route: 042
     Dates: start: 20081229

REACTIONS (1)
  - ATAXIA [None]
